FAERS Safety Report 7203970-1 (Version None)
Quarter: 2010Q4

REPORT INFORMATION
  Report Type: 
  Country: None (occurrence: None)
  Receive Date: 20101230
  Receipt Date: 20101220
  Transmission Date: 20110411
  Serious: No
  Sender: FDA-Public Use
  Company Number: CA-ELI_LILLY_AND_COMPANY-CA201012005245

PATIENT
  Age: 61 Year
  Sex: Female

DRUGS (18)
  1. CYMBALTA [Suspect]
     Indication: DIABETIC NEUROPATHY
     Dosage: UNK, UNKNOWN
     Dates: start: 20100901
  2. CYMBALTA [Suspect]
     Dosage: 60 MG, DAILY (1/D)
     Route: 048
  3. EFFEXOR [Concomitant]
     Dates: end: 20100901
  4. METFORMIN [Concomitant]
  5. ELTROXIN [Concomitant]
  6. MIRAPEX [Concomitant]
  7. QUESTRAN [Concomitant]
  8. DIOVAN [Concomitant]
  9. SINEMET [Concomitant]
  10. COMTAN [Concomitant]
  11. ZOPICLONE [Concomitant]
  12. CLONAZEPAM [Concomitant]
  13. HYDROMORPHONE HCL [Concomitant]
  14. DILAUDID [Concomitant]
     Dosage: UNK, AS NEEDED
  15. INSULIN [Concomitant]
  16. ASPIRIN [Concomitant]
     Dosage: 81 MG, UNK
  17. VITAMIN D [Concomitant]
  18. VITALUX [Concomitant]

REACTIONS (6)
  - CONTUSION [None]
  - DYSURIA [None]
  - HYPERHIDROSIS [None]
  - URINE COLOUR ABNORMAL [None]
  - VISION BLURRED [None]
  - YELLOW SKIN [None]
